FAERS Safety Report 7344503-9 (Version None)
Quarter: 2011Q1

REPORT INFORMATION
  Report Type: 
  Country: None (occurrence: None)
  Receive Date: 20110310
  Receipt Date: 20110303
  Transmission Date: 20110831
  Serious: Yes (Death, Other)
  Sender: FDA-Public Use
  Company Number: MX-BRISTOL-MYERS SQUIBB COMPANY-15590110

PATIENT
  Age: 71 Year
  Sex: Male

DRUGS (2)
  1. APROVEL TABS 150 MG [Suspect]
     Indication: HYPERTENSION
     Route: 048
     Dates: end: 20101231
  2. OMEPRAZOLE [Concomitant]
     Indication: GASTRITIS
     Dosage: TABS
     Route: 048

REACTIONS (2)
  - DEATH [None]
  - RENAL FAILURE CHRONIC [None]
